FAERS Safety Report 21459922 (Version 2)
Quarter: 2022Q4

REPORT INFORMATION
  Report Type: Spontaneous
  Country: US (occurrence: US)
  Receive Date: 20221014
  Receipt Date: 20221115
  Transmission Date: 20230113
  Serious: No
  Sender: FDA-Public Use
  Company Number: US-009507513-2210USA003410

PATIENT
  Age: 41 Year
  Sex: Female

DRUGS (2)
  1. PRIMAXIN IV [Suspect]
     Active Substance: CILASTATIN SODIUM\IMIPENEM
     Indication: Atypical mycobacterial infection
     Dosage: UNK
  2. EPOPROSTENOL [Concomitant]
     Active Substance: EPOPROSTENOL
     Route: 042

REACTIONS (1)
  - Product use in unapproved indication [Unknown]
